FAERS Safety Report 11813127 (Version 1)
Quarter: 2015Q4

REPORT INFORMATION
  Report Type: Other
  Country: US (occurrence: US)
  Receive Date: 20151209
  Receipt Date: 20151209
  Transmission Date: 20160305
  Serious: Yes (Life-Threatening, Hospitalization)
  Sender: FDA-Public Use
  Company Number: US-ORCHID HEALTHCARE-1045231

PATIENT
  Age: 47 Year
  Sex: Male

DRUGS (4)
  1. AMLODIPINE BESYLATE. [Suspect]
     Active Substance: AMLODIPINE BESYLATE
     Route: 065
  2. TRAZODONE [Suspect]
     Active Substance: TRAZODONE HYDROCHLORIDE
     Route: 065
  3. HYDROXYZINE [Suspect]
     Active Substance: HYDROXYZINE\HYDROXYZINE HYDROCHLORIDE
     Route: 065
  4. LISINOPRIL. [Suspect]
     Active Substance: LISINOPRIL
     Route: 065

REACTIONS (8)
  - Hypotension [Recovered/Resolved]
  - Drug level above therapeutic [Recovered/Resolved]
  - Shock [Recovered/Resolved]
  - Bradycardia [Recovered/Resolved]
  - Electrocardiogram QRS complex prolonged [Recovered/Resolved]
  - Intentional overdose [Recovered/Resolved]
  - Electrocardiogram QT prolonged [Recovered/Resolved]
  - Lactic acidosis [Recovered/Resolved]
